FAERS Safety Report 14191251 (Version 2)
Quarter: 2018Q4

REPORT INFORMATION
  Report Type: Report from Study
  Country: US (occurrence: CA)
  Receive Date: 20171115
  Receipt Date: 20181213
  Transmission Date: 20190204
  Serious: Yes (Hospitalization, Other)
  Sender: FDA-Public Use
  Company Number: US-SUNOVION-2016001225

PATIENT
  Age: 47 Year
  Sex: Female

DRUGS (10)
  1. VENTOLIN [Concomitant]
     Active Substance: ALBUTEROL SULFATE
     Dosage: UNK UNK, Q4H (NEBULISER)
     Route: 065
  2. INDACATEROL AND GLYCOPYRROLATE [Suspect]
     Active Substance: GLYCOPYRROLATE\INDACATEROL MALEATE
     Indication: PRODUCT USED FOR UNKNOWN INDICATION
     Dosage: 1 DF (GLYCOPYRRONIUM BROMIDE 50 UG/ INDACATEROL 100 UG), QD
     Route: 055
  3. XOLAIR [Suspect]
     Active Substance: OMALIZUMAB
     Dosage: UNK, (REGIMEN #2)
     Route: 058
     Dates: start: 20160718
  4. XOLAIR [Suspect]
     Active Substance: OMALIZUMAB
     Indication: ASTHMA
     Dosage: 300 MG, EVERY 8 WEEKS (REGIMEN #1)
     Route: 058
     Dates: start: 20160324
  5. XOLAIR [Suspect]
     Active Substance: OMALIZUMAB
     Dosage: UNK, (REGIMEN #3)
     Route: 058
     Dates: start: 20171102
  6. ANORO ELLIPTA [Concomitant]
     Active Substance: UMECLIDINIUM BROMIDE\VILANTEROL TRIFENATATE
     Dosage: 65, 5/25 UG, UNK
  7. ZENHALE [Concomitant]
     Active Substance: FORMOTEROL FUMARATE\MOMETASONE FUROATE
  8. XOLAIR [Suspect]
     Active Substance: OMALIZUMAB
     Dosage: UNK, (REGIMEN #4)
     Route: 058
     Dates: start: 20180125
  9. ASMANEX [Concomitant]
     Active Substance: MOMETASONE FUROATE
     Dosage: 400 UG, QD
     Route: 065
  10. XOLAIR [Suspect]
     Active Substance: OMALIZUMAB
     Dosage: UNK

REACTIONS (10)
  - Exercise tolerance decreased [Unknown]
  - Bronchospasm [Unknown]
  - Influenza [Recovering/Resolving]
  - Pneumonia [Recovering/Resolving]
  - Cardiac disorder [Unknown]
  - Heart rate increased [Not Recovered/Not Resolved]
  - Cardiac dysfunction [Unknown]
  - Hyperventilation [Unknown]
  - Asthenia [Unknown]
  - Drug ineffective [Unknown]

NARRATIVE: CASE EVENT DATE: 201606
